FAERS Safety Report 8852992 (Version 1)
Quarter: 2012Q4

REPORT INFORMATION
  Report Type: 
  Country: CN (occurrence: CN)
  Receive Date: 20121022
  Receipt Date: 20121022
  Transmission Date: 20130627
  Serious: Yes (Other)
  Sender: FDA-Public Use
  Company Number: PHHY2012CN092917

PATIENT

DRUGS (2)
  1. CICLOSPORIN [Suspect]
     Indication: NEPHROTIC SYNDROME
     Dosage: 3-5 mg/kg, UNK
     Route: 048
  2. PREDNISONE [Concomitant]
     Dosage: 1 mg/kg, UNK

REACTIONS (2)
  - Cerebral atrophy [Unknown]
  - Convulsion [Unknown]
